FAERS Safety Report 17310575 (Version 3)
Quarter: 2024Q4

REPORT INFORMATION
  Report Type: Spontaneous
  Country: US (occurrence: US)
  Receive Date: 20200123
  Receipt Date: 20241119
  Transmission Date: 20250114
  Serious: No
  Sender: NOVARTIS
  Company Number: None

PATIENT
  Sex: Female

DRUGS (1)
  1. BEOVU [Suspect]
     Active Substance: BROLUCIZUMAB-DBLL
     Indication: Neovascular age-related macular degeneration
     Dosage: 6 MG
     Route: 065

REACTIONS (1)
  - Eye inflammation [Unknown]
